FAERS Safety Report 7256630-5 (Version None)
Quarter: 2011Q1

REPORT INFORMATION
  Report Type: 
  Country: None (occurrence: None)
  Receive Date: 20110129
  Receipt Date: 20100807
  Transmission Date: 20110831
  Serious: No
  Sender: FDA-Public Use
  Company Number: US-ABBOTT-10P-163-0654944-00

PATIENT
  Age: 37 Year
  Sex: Male

DRUGS (2)
  1. LASIX [Concomitant]
     Indication: FLUID RETENTION
     Route: 048
  2. HUMIRA [Suspect]
     Indication: PSORIASIS
     Route: 058
     Dates: start: 20100511, end: 20100726

REACTIONS (6)
  - INSOMNIA [None]
  - SOMNOLENCE [None]
  - ARTHRALGIA [None]
  - MALAISE [None]
  - SLUGGISHNESS [None]
  - MOBILITY DECREASED [None]
